FAERS Safety Report 8060815-8 (Version None)
Quarter: 2012Q1

REPORT INFORMATION
  Report Type: 
  Country: None (occurrence: None)
  Receive Date: 20120120
  Receipt Date: 20110201
  Transmission Date: 20120608
  Serious: No
  Sender: FDA-Public Use
  Company Number: US-ALLERGAN-1101427US

PATIENT
  Age: 64 Year
  Sex: Male

DRUGS (3)
  1. REFRESH (UNSPECIFIED) [Concomitant]
  2. RESTASIS [Suspect]
     Indication: DRY EYE
  3. TOBRAMYCIN [Concomitant]
     Dosage: UNK

REACTIONS (1)
  - EYE IRRITATION [None]
